FAERS Safety Report 8162186-5 (Version None)
Quarter: 2012Q1

REPORT INFORMATION
  Report Type: 
  Country: None (occurrence: None)
  Receive Date: 20120224
  Receipt Date: 20111212
  Transmission Date: 20120608
  Serious: No
  Sender: FDA-Public Use
  Company Number: US-BRISTOL-MYERS SQUIBB COMPANY-16284465

PATIENT
  Age: 56 Year
  Sex: Male
  Weight: 79 kg

DRUGS (5)
  1. METOPROLOL TARTRATE [Concomitant]
  2. LIPITOR [Concomitant]
  3. PLAVIX [Concomitant]
  4. GLUCOPHAGE [Suspect]
     Dosage: FOR 2-3 YEARS
  5. GLIPIZIDE [Concomitant]

REACTIONS (1)
  - MUSCULOSKELETAL PAIN [None]
